FAERS Safety Report 24673879 (Version 4)
Quarter: 2025Q1

REPORT INFORMATION
  Report Type: Report from Study
  Country: US (occurrence: US)
  Receive Date: 20241128
  Receipt Date: 20250307
  Transmission Date: 20250408
  Serious: Yes (Hospitalization)
  Sender: TAKEDA
  Company Number: US-TAKEDA-2024TUS117665

PATIENT
  Age: 52 Year
  Sex: Female
  Weight: 68 kg

DRUGS (18)
  1. HUMAN IMMUNOGLOBULIN G [Suspect]
     Active Substance: HUMAN IMMUNOGLOBULIN G
     Indication: Thrombocytosis
     Dosage: 140 GRAM, Q4WEEKS
     Dates: start: 20240913
  2. VALACYCLOVIR [Concomitant]
     Active Substance: VALACYCLOVIR HYDROCHLORIDE
  3. PREDNISONE [Concomitant]
     Active Substance: PREDNISONE
  4. MODAFINIL [Concomitant]
     Active Substance: MODAFINIL
  5. DEXAMETHASONE SODIUM PHOSPHATE [Concomitant]
     Active Substance: DEXAMETHASONE SODIUM PHOSPHATE
  6. NEXIUM [Concomitant]
     Active Substance: ESOMEPRAZOLE MAGNESIUM
  7. PERCOCET [Concomitant]
     Active Substance: ACETAMINOPHEN\OXYCODONE HYDROCHLORIDE
  8. ROSUVASTATIN CALCIUM [Concomitant]
     Active Substance: ROSUVASTATIN CALCIUM
  9. CYANOCOBALAMIN [Concomitant]
     Active Substance: CYANOCOBALAMIN
  10. IMITREX [Concomitant]
     Active Substance: SUMATRIPTAN SUCCINATE
  11. LASIX [Concomitant]
     Active Substance: FUROSEMIDE
  12. PREGABALIN [Concomitant]
     Active Substance: PREGABALIN
  13. CREON [Concomitant]
     Active Substance: PANCRELIPASE AMYLASE\PANCRELIPASE LIPASE\PANCRELIPASE PROTEASE
  14. JARDIANCE [Concomitant]
     Active Substance: EMPAGLIFLOZIN
  15. CARAFATE [Concomitant]
     Active Substance: SUCRALFATE
  16. TRINTELLIX [Concomitant]
     Active Substance: VORTIOXETINE HYDROBROMIDE
  17. ONDANSETRON [Concomitant]
     Active Substance: ONDANSETRON
  18. AIMOVIG [Concomitant]
     Active Substance: ERENUMAB-AOOE

REACTIONS (5)
  - Gastrointestinal disorder [Unknown]
  - Dehydration [Unknown]
  - Insurance issue [Unknown]
  - Product use in unapproved indication [Unknown]
  - Migraine [Unknown]

NARRATIVE: CASE EVENT DATE: 20240913
